FAERS Safety Report 12560201 (Version 1)
Quarter: 2016Q3

REPORT INFORMATION
  Report Type: Spontaneous
  Country: US (occurrence: None)
  Receive Date: 20160714
  Receipt Date: 20160714
  Transmission Date: 20161109
  Serious: Yes (Life-Threatening, Hospitalization)
  Sender: FDA-Public Use
  Company Number: None

PATIENT
  Sex: Male
  Weight: 90.72 kg

DRUGS (3)
  1. EYLEA [Suspect]
     Active Substance: AFLIBERCEPT
     Route: 031
  2. VITAMINS [Concomitant]
     Active Substance: VITAMINS
  3. MINERALS [Concomitant]
     Active Substance: MINERALS

REACTIONS (4)
  - Eye pain [None]
  - Cerebrovascular accident [None]
  - Thinking abnormal [None]
  - Speech disorder [None]
